FAERS Safety Report 17318870 (Version 2)
Quarter: 2020Q1

REPORT INFORMATION
  Report Type: Spontaneous
  Country: JP (occurrence: JP)
  Receive Date: 20200124
  Receipt Date: 20200207
  Transmission Date: 20200409
  Serious: Yes (Hospitalization, Other)
  Sender: FDA-Public Use
  Company Number: JP-009507513-2001JPN008251

PATIENT
  Age: 48 Year
  Sex: Male

DRUGS (7)
  1. E KEPPRA [Suspect]
     Active Substance: LEVETIRACETAM
     Indication: PARTIAL SEIZURES
     Dosage: 1000 MG, ONCE DAILY (QD)
     Route: 048
     Dates: start: 201508, end: 20160303
  2. E KEPPRA [Suspect]
     Active Substance: LEVETIRACETAM
     Dosage: 1000 MG, ONCE DAILY (QD)
     Route: 048
     Dates: start: 20160321, end: 20160405
  3. AMLODIPINE BESYLATE. [Suspect]
     Active Substance: AMLODIPINE BESYLATE
     Indication: PRODUCT USED FOR UNKNOWN INDICATION
     Dosage: 5 MG DAILY
     Route: 048
     Dates: start: 20160316, end: 20160331
  4. GLACTIV [Suspect]
     Active Substance: SITAGLIPTIN
     Indication: PRODUCT USED FOR UNKNOWN INDICATION
     Dosage: 50 MG DAILY
     Route: 048
     Dates: end: 20160330
  5. FAMOTIDINE. [Suspect]
     Active Substance: FAMOTIDINE
     Indication: PRODUCT USED FOR UNKNOWN INDICATION
     Dosage: 20 MG DAILY
     Route: 048
     Dates: start: 20160314, end: 20160405
  6. BETAMETHASONE. [Concomitant]
     Active Substance: BETAMETHASONE
     Indication: TOXIC EPIDERMAL NECROLYSIS
  7. LEBELBON [Suspect]
     Active Substance: BROMHEXINE
     Indication: PRODUCT USED FOR UNKNOWN INDICATION
     Dosage: 15 ML DAILY
     Route: 048
     Dates: start: 20160324, end: 20160405

REACTIONS (2)
  - Putamen haemorrhage [Recovering/Resolving]
  - Toxic epidermal necrolysis [Recovered/Resolved]

NARRATIVE: CASE EVENT DATE: 20160303
